FAERS Safety Report 20863578 (Version 1)
Quarter: 2022Q2

REPORT INFORMATION
  Report Type: Spontaneous
  Country: AU (occurrence: AU)
  Receive Date: 20220523
  Receipt Date: 20220523
  Transmission Date: 20220720
  Serious: Yes (Other)
  Sender: FDA-Public Use
  Company Number: AU-LUNDBECK-DKLU3047951

PATIENT
  Sex: Female

DRUGS (1)
  1. ESCITALOPRAM OXALATE [Suspect]
     Active Substance: ESCITALOPRAM OXALATE
     Indication: Product used for unknown indication
     Dosage: 20 MG
     Route: 065

REACTIONS (10)
  - Meningioma [Unknown]
  - Antisocial behaviour [Recovering/Resolving]
  - Peripheral nerve palsy [Unknown]
  - Vision blurred [Unknown]
  - Apathy [Recovering/Resolving]
  - Memory impairment [Recovering/Resolving]
  - Depressed mood [Recovering/Resolving]
  - Insomnia [Unknown]
  - Fatigue [Unknown]
  - Headache [Unknown]
